FAERS Safety Report 9571342 (Version 1)
Quarter: 2013Q1

REPORT INFORMATION
  Report Type: Spontaneous
  Country: US (occurrence: None)
  Receive Date: 20120507
  Receipt Date: 20120507
  Transmission Date: 20140127
  Serious: Yes (Other)
  Sender: FDA-Public Use
  Company Number: 2009US002464

PATIENT
  Sex: Male

DRUGS (1)
  1. LEXISCAN (REGADENOSON) INJECTION, 0.08 MG/ML [Suspect]
     Indication: SCAN MYOCARDIAL PERFUSION
     Route: 042

REACTIONS (4)
  - Cardiac arrest [None]
  - Presyncope [None]
  - Pallor [None]
  - Nausea [None]
